FAERS Safety Report 18081395 (Version 2)
Quarter: 2020Q3

REPORT INFORMATION
  Report Type: Spontaneous
  Country: US (occurrence: US)
  Receive Date: 20200728
  Receipt Date: 20200820
  Transmission Date: 20201103
  Serious: Yes (Hospitalization, Other)
  Sender: FDA-Public Use
  Company Number: US-PFIZER INC-2020285707

PATIENT
  Age: 49 Year
  Sex: Male
  Weight: 82 kg

DRUGS (2)
  1. CELEBREX [Suspect]
     Active Substance: CELECOXIB
     Indication: PAIN
  2. CELEBREX [Suspect]
     Active Substance: CELECOXIB
     Indication: JOINT DISLOCATION
     Dosage: 10 MG, 2X/DAY (A LOW MILLIGRAMS)
     Dates: start: 2019

REACTIONS (10)
  - Productive cough [Not Recovered/Not Resolved]
  - Pyrexia [Not Recovered/Not Resolved]
  - Diabetes mellitus [Unknown]
  - Pancreatitis [Unknown]
  - COVID-19 [Not Recovered/Not Resolved]
  - Cold sweat [Unknown]
  - Loss of personal independence in daily activities [Unknown]
  - Taste disorder [Recovering/Resolving]
  - Anosmia [Recovered/Resolved]
  - Sleep disorder due to general medical condition, insomnia type [Unknown]

NARRATIVE: CASE EVENT DATE: 20200720
